FAERS Safety Report 19787324 (Version 1)
Quarter: 2021Q3

REPORT INFORMATION
  Report Type: Spontaneous
  Country: US (occurrence: US)
  Receive Date: 20210903
  Receipt Date: 20210903
  Transmission Date: 20211014
  Serious: No
  Sender: FDA-Public Use
  Company Number: US-DECIPHERA PHARMACEUTICALS LLC-2021US000465

PATIENT
  Sex: Male

DRUGS (2)
  1. QINLOCK [Suspect]
     Active Substance: RIPRETINIB
     Indication: GASTROINTESTINAL STROMAL TUMOUR
     Dosage: 150 MILLIGRAM, QD (QAM)
     Route: 048
     Dates: start: 20210519
  2. QINLOCK [Suspect]
     Active Substance: RIPRETINIB
     Dosage: 100 MILLIGRAM QD
     Dates: start: 2021

REACTIONS (8)
  - Abdominal pain upper [Unknown]
  - Myalgia [Unknown]
  - Blood pressure increased [Unknown]
  - Pain in extremity [Unknown]
  - Headache [Unknown]
  - Constipation [Unknown]
  - Hypoaesthesia [Unknown]
  - Gastrointestinal disorder [Unknown]

NARRATIVE: CASE EVENT DATE: 2021
